FAERS Safety Report 4314712-1 (Version None)
Quarter: 2004Q1

REPORT INFORMATION
  Report Type: 
  Country: None (occurrence: None)
  Receive Date: 20040309
  Receipt Date: 20040309
  Transmission Date: 20041129
  Serious: Yes (Hospitalization)
  Sender: FDA-Public Use
  Company Number: None

PATIENT
  Age: 47 Year
  Weight: 82.5093 kg

DRUGS (4)
  1. CISPLATIN [Suspect]
     Indication: METASTASES TO NECK
     Dosage: 188.0 MG
     Dates: start: 20040219
  2. CISPLATIN [Suspect]
     Indication: TONSIL CANCER
     Dosage: 188.0 MG
     Dates: start: 20040219
  3. XRT [Concomitant]
  4. CISPLATIN [Suspect]

REACTIONS (12)
  - BLOOD PRESSURE ORTHOSTATIC DECREASED [None]
  - DEHYDRATION [None]
  - LABORATORY TEST ABNORMAL [None]
  - LEUKOPENIA [None]
  - MARKEDLY REDUCED DIETARY INTAKE [None]
  - NEUTROPENIA [None]
  - ORAL PAIN [None]
  - PLATELET COUNT DECREASED [None]
  - SECRETION DISCHARGE [None]
  - STOMATITIS [None]
  - TONGUE DISORDER [None]
  - WHITE BLOOD CELL COUNT DECREASED [None]
